FAERS Safety Report 18233715 (Version 2)
Quarter: 2024Q1

REPORT INFORMATION
  Report Type: Spontaneous
  Country: CA (occurrence: None)
  Receive Date: 20200904
  Receipt Date: 20240208
  Transmission Date: 20240410
  Serious: Yes (Hospitalization)
  Sender: FDA-Public Use
  Company Number: 2020SF09668

PATIENT
  Age: 75 Year
  Sex: Male

DRUGS (9)
  1. QUETIAPINE [Suspect]
     Active Substance: QUETIAPINE
     Indication: Anxiety
     Route: 048
     Dates: start: 20191126, end: 20191205
  2. QUETIAPINE [Suspect]
     Active Substance: QUETIAPINE
     Indication: Agitation
     Route: 048
     Dates: start: 20191126, end: 20191205
  3. BISOPROLOL [Concomitant]
     Active Substance: BISOPROLOL\BISOPROLOL FUMARATE
     Route: 065
  4. ELIQUIS [Concomitant]
     Active Substance: APIXABAN
     Route: 065
  5. HYDROMORPHONE [Concomitant]
     Active Substance: HYDROMORPHONE
     Route: 065
  6. LOXAPINE [Concomitant]
     Active Substance: LOXAPINE
     Dosage: 5-LOMG PO/IM Q4H PRN (10MG GIVEN X 11DEC)
  7. MELATONIN [Concomitant]
     Active Substance: MELATONIN
     Route: 065
  8. RAMIPRIL [Concomitant]
     Active Substance: RAMIPRIL
     Route: 065
  9. TYLENOL [Concomitant]
     Active Substance: ACETAMINOPHEN
     Route: 065

REACTIONS (9)
  - Blood pressure fluctuation [Unknown]
  - Camptocormia [Unknown]
  - Hyperhidrosis [Unknown]
  - Parkinsonian rest tremor [Unknown]
  - Serotonin syndrome [Unknown]
  - Neuroleptic malignant syndrome [Unknown]
  - Cogwheel rigidity [Unknown]
  - Blood creatine phosphokinase increased [Unknown]
  - Restlessness [Unknown]

NARRATIVE: CASE EVENT DATE: 20191203
